FAERS Safety Report 5722874-4 (Version None)
Quarter: 2008Q2

REPORT INFORMATION
  Report Type: 
  Country: None (occurrence: None)
  Receive Date: 20080425
  Receipt Date: 20080414
  Transmission Date: 20081010
  Serious: Yes (Other)
  Sender: FDA-Public Use
  Company Number: 2008S1006251

PATIENT
  Age: 38 Year
  Sex: Male

DRUGS (3)
  1. DILANTIN [Suspect]
     Dosage: 100 MG
     Dates: start: 20071101
  2. DILANTIN [Suspect]
     Dosage: 100 MG
     Dates: start: 20080327
  3. PHENYTOIN SODIUM [Suspect]
     Indication: CONVULSION
     Dosage: 100 MG; ORAL
     Route: 048
     Dates: start: 20071101

REACTIONS (5)
  - BLOOD IRON DECREASED [None]
  - CONVULSION [None]
  - DYSPHAGIA [None]
  - GASTROOESOPHAGEAL REFLUX DISEASE [None]
  - OESOPHAGEAL HAEMORRHAGE [None]
